FAERS Safety Report 5735030-0 (Version None)
Quarter: 2008Q2

REPORT INFORMATION
  Report Type: 
  Country: None (occurrence: None)
  Receive Date: 20080512
  Receipt Date: 20080505
  Transmission Date: 20081010
  Serious: Yes (Hospitalization)
  Sender: FDA-Public Use
  Company Number: US-MERCK-0805USA00796

PATIENT
  Age: 76 Year
  Sex: Female

DRUGS (9)
  1. FOSAMAX [Suspect]
     Indication: OSTEOPOROSIS
     Route: 048
     Dates: start: 20050101, end: 20080101
  2. SYNTHROID [Concomitant]
     Route: 065
  3. SOTALOL HYDROCHLORIDE [Concomitant]
     Route: 065
  4. CELEBREX [Concomitant]
     Route: 065
  5. PROTONIX [Concomitant]
     Route: 065
  6. LIPITOR [Concomitant]
     Route: 065
  7. COUMADIN [Concomitant]
     Route: 065
  8. PROZAC [Concomitant]
     Route: 065
  9. FOSAMAX [Suspect]
     Route: 048
     Dates: start: 20080101, end: 20080101

REACTIONS (1)
  - ATRIAL FIBRILLATION [None]
